FAERS Safety Report 17784152 (Version 1)
Quarter: 2020Q2

REPORT INFORMATION
  Report Type: Spontaneous
  Country: US (occurrence: US)
  Receive Date: 20200513
  Receipt Date: 20200513
  Transmission Date: 20200714
  Serious: Yes (Life-Threatening, Hospitalization)
  Sender: FDA-Public Use
  Company Number: None

PATIENT
  Age: 41 Year
  Sex: Male
  Weight: 78.93 kg

DRUGS (1)
  1. IBUPROFEN (IBUPROFEN 800MG TAB) [Suspect]
     Active Substance: IBUPROFEN
     Indication: PAIN
     Dates: start: 20180706, end: 20180721

REACTIONS (3)
  - Cough [None]
  - Wheezing [None]
  - Asthma [None]

NARRATIVE: CASE EVENT DATE: 20180723
